FAERS Safety Report 9591393 (Version 1)
Quarter: 2013Q4

REPORT INFORMATION
  Report Type: Spontaneous
  Country: US (occurrence: US)
  Receive Date: 20131003
  Receipt Date: 20131003
  Transmission Date: 20140711
  Serious: No
  Sender: FDA-Public Use
  Company Number: US-AMGEN-USASP2012080831

PATIENT
  Sex: Female
  Weight: 77.1 kg

DRUGS (18)
  1. ENBREL [Suspect]
     Indication: RHEUMATOID ARTHRITIS
     Dosage: 50 MG,WEEKLY
     Route: 058
  2. METHOTREXATE [Concomitant]
     Dosage: 1 G, UNK
  3. PLAQUENIL                          /00072602/ [Concomitant]
     Dosage: 200 MG, UNK
  4. PREDNISONE [Concomitant]
     Dosage: 1 UNK, UNK
  5. CELEBREX [Concomitant]
     Dosage: 200 MG, UNK
  6. PRILOSEC                           /00661201/ [Concomitant]
     Dosage: 10 MG, UNK
  7. LEUCOVORIN CA [Concomitant]
     Dosage: 200 MG, UNK
  8. MULTIVITAMIN                       /00097801/ [Concomitant]
     Dosage: UNK
  9. LIPITOR [Concomitant]
     Dosage: 10 MG, UNK
  10. LEXAPRO [Concomitant]
     Dosage: 10 MG, UNK
  11. IMODIUM ADVANCED [Concomitant]
     Dosage: UNK
  12. TYLENOL PM [Concomitant]
     Dosage: 25-500 MG, UNK
  13. GAS-X [Concomitant]
     Dosage: UNK
  14. TUMS                               /07357001/ [Concomitant]
     Dosage: 500 MG, UNK
  15. HUMIRA [Concomitant]
     Dosage: 40 MG/ 0.8, UNK
  16. FORTEO [Concomitant]
     Dosage: 600 / 2.4 UNK, UNK
  17. VITAMIN D                          /00318501/ [Concomitant]
     Dosage: 2000 UNIT, UNK
  18. CALCITRATE [Concomitant]
     Dosage: UNK

REACTIONS (1)
  - Drug ineffective [Unknown]
